FAERS Safety Report 4546520-0 (Version None)
Quarter: 2005Q1

REPORT INFORMATION
  Report Type: 
  Country: None (occurrence: None)
  Receive Date: 20050106
  Receipt Date: 20041221
  Transmission Date: 20050727
  Serious: Yes (Hospitalization, Disabling)
  Sender: FDA-Public Use
  Company Number: IT-GLAXOSMITHKLINE-B0362576A

PATIENT
  Age: 41 Year
  Sex: Male
  Weight: 65 kg

DRUGS (2)
  1. FOSAMPRENAVIR [Suspect]
     Indication: HIV INFECTION
     Dosage: 700MG TWICE PER DAY
     Route: 048
     Dates: start: 20041123, end: 20041220
  2. RITONAVIR [Suspect]
     Indication: HIV INFECTION
     Dosage: 100MG TWICE PER DAY
     Route: 048
     Dates: start: 20041123, end: 20041220

REACTIONS (8)
  - ABNORMAL BEHAVIOUR [None]
  - AMNESIA [None]
  - APRAXIA [None]
  - BRADYPHRENIA [None]
  - HYPERSOMNIA [None]
  - ILLUSION [None]
  - MENTAL DISORDER [None]
  - RETROGRADE AMNESIA [None]
